FAERS Safety Report 6505676-0 (Version None)
Quarter: 2009Q4

REPORT INFORMATION
  Report Type: 
  Country: None (occurrence: None)
  Receive Date: 20091218
  Receipt Date: 20091214
  Transmission Date: 20100525
  Serious: Yes (Death, Hospitalization)
  Sender: FDA-Public Use
  Company Number: A0835485A

PATIENT
  Sex: Female

DRUGS (1)
  1. AROPAX [Suspect]
     Indication: DRUG USE FOR UNKNOWN INDICATION
     Route: 048
     Dates: start: 20080801, end: 20090901

REACTIONS (3)
  - BRONCHITIS [None]
  - BRONCHOPNEUMONIA [None]
  - RESPIRATORY ARREST [None]
